FAERS Safety Report 7486693-3 (Version None)
Quarter: 2011Q2

REPORT INFORMATION
  Report Type: 
  Country: None (occurrence: None)
  Receive Date: 20110517
  Receipt Date: 20100827
  Transmission Date: 20111010
  Serious: No
  Sender: FDA-Public Use
  Company Number: US-NOVEN-ALL1-2010-04551

PATIENT
  Sex: Male
  Weight: 29.478 kg

DRUGS (4)
  1. GARLIC                             /01570501/ [Concomitant]
     Dosage: UNK, ONE TABLET 1X/DAY:QD
     Route: 048
     Dates: start: 20091001
  2. DAYTRANA [Suspect]
     Dosage: 20 MG, 1X/DAY:QD
     Route: 062
     Dates: start: 20100818
  3. VITAMINS NOS [Concomitant]
     Dosage: UNK, ONE TABLET 1X/DAY:QD
     Route: 048
  4. DAYTRANA [Suspect]
     Dosage: 10 MG, 1X/DAY:QD
     Route: 062
     Dates: start: 20091001, end: 20100817

REACTIONS (7)
  - DRUG ADMINISTERED AT INAPPROPRIATE SITE [None]
  - OFF LABEL USE [None]
  - PRODUCT QUALITY ISSUE [None]
  - PSYCHOMOTOR HYPERACTIVITY [None]
  - DRUG INEFFECTIVE [None]
  - CONDUCT DISORDER [None]
  - WRONG TECHNIQUE IN DRUG USAGE PROCESS [None]
